FAERS Safety Report 7648353-5 (Version None)
Quarter: 2011Q3

REPORT INFORMATION
  Report Type: 
  Country: None (occurrence: None)
  Receive Date: 20110801
  Receipt Date: 20110726
  Transmission Date: 20111222
  Serious: Yes (Hospitalization)
  Sender: FDA-Public Use
  Company Number: KR-PFIZER INC-2010021025

PATIENT
  Age: 40 Year
  Sex: Female
  Weight: 59 kg

DRUGS (3)
  1. XELODA [Suspect]
     Indication: METASTATIC GASTRIC CANCER
     Dosage: 1150 MG, 2X/DAY, DAY 1-14
     Route: 048
     Dates: start: 20091103, end: 20100202
  2. SUNITINIB MALATE [Suspect]
     Indication: METASTATIC GASTRIC CANCER
     Dosage: 25 MG, 1X/DAY, 2/1 SCHEDULE
     Route: 048
     Dates: start: 20091103, end: 20100201
  3. CISPLATIN [Suspect]
     Indication: METASTATIC GASTRIC CANCER
     Dosage: 123 MG, CYCLIC, EVERY 3 WEEKS
     Route: 042
     Dates: start: 20091103, end: 20100119

REACTIONS (1)
  - PYELONEPHRITIS [None]
